FAERS Safety Report 16421095 (Version 1)
Quarter: 2019Q2

REPORT INFORMATION
  Report Type: Spontaneous
  Country: US (occurrence: US)
  Receive Date: 20190506
  Receipt Date: 20190506
  Transmission Date: 20190711
  Serious: Yes (Hospitalization)
  Sender: FDA-Public Use
  Company Number: None

PATIENT
  Age: 55 Year
  Sex: Female

DRUGS (1)
  1. ACTEMRA [Suspect]
     Active Substance: TOCILIZUMAB
     Indication: RHEUMATOID ARTHRITIS
     Route: 058
     Dates: start: 20181210

REACTIONS (10)
  - Urinary bladder haemorrhage [None]
  - Fall [None]
  - Rheumatoid arthritis [None]
  - Product dose omission [None]
  - Pneumonia [None]
  - Cystitis [None]
  - Nephrolithiasis [None]
  - Rib fracture [None]
  - Peripheral swelling [None]
  - Pleural effusion [None]

NARRATIVE: CASE EVENT DATE: 20190401
